FAERS Safety Report 25577984 (Version 1)
Quarter: 2025Q3

REPORT INFORMATION
  Report Type: Spontaneous
  Country: US (occurrence: US)
  Receive Date: 20250718
  Receipt Date: 20250718
  Transmission Date: 20251021
  Serious: No
  Sender: BAYER HEALTHCARE PHARMACEUTICALS INC.
  Company Number: US-BAYER-2025A094683

PATIENT
  Age: 37 Year
  Sex: Female

DRUGS (4)
  1. MIRENA [Suspect]
     Active Substance: LEVONORGESTREL
     Indication: Menstruation irregular
     Dosage: 20?G/DAY
     Route: 015
     Dates: start: 202311
  2. MIRENA [Suspect]
     Active Substance: LEVONORGESTREL
     Indication: Abnormal uterine bleeding
  3. MIRENA [Suspect]
     Active Substance: LEVONORGESTREL
     Indication: Vaginal haemorrhage
  4. MIRENA [Suspect]
     Active Substance: LEVONORGESTREL
     Indication: Intrauterine contraception

REACTIONS (2)
  - Device dislocation [Not Recovered/Not Resolved]
  - Device physical property issue [None]

NARRATIVE: CASE EVENT DATE: 20250626
